FAERS Safety Report 4386833-9 (Version None)
Quarter: 2004Q2

REPORT INFORMATION
  Report Type: 
  Country: None (occurrence: None)
  Receive Date: 20040630
  Receipt Date: 20040622
  Transmission Date: 20050107
  Serious: Yes (Life-Threatening, Hospitalization)
  Sender: FDA-Public Use
  Company Number: AE-MERCK-0406USA01968

PATIENT
  Age: 37 Year

DRUGS (6)
  1. ASPIRIN [Concomitant]
     Route: 048
  2. CAPOTEN [Concomitant]
     Route: 048
  3. PLAVIX [Concomitant]
     Route: 048
  4. ISORDIL [Concomitant]
     Route: 060
  5. GTN [Concomitant]
     Route: 060
  6. ZOCOR [Suspect]
     Route: 048

REACTIONS (1)
  - ANGINA UNSTABLE [None]
